FAERS Safety Report 21264468 (Version 2)
Quarter: 2022Q3

REPORT INFORMATION
  Report Type: Spontaneous
  Country: CA (occurrence: CA)
  Receive Date: 20220829
  Receipt Date: 20220923
  Transmission Date: 20221026
  Serious: Yes (Other)
  Sender: FDA-Public Use
  Company Number: CA-ALLERGAN-2227395US

PATIENT
  Sex: Female

DRUGS (1)
  1. BOTOX [Suspect]
     Active Substance: ONABOTULINUMTOXINA
     Indication: Migraine
     Dosage: 200 UNITS, SINGLE
     Route: 030

REACTIONS (7)
  - Pharyngeal swelling [Unknown]
  - Periorbital swelling [Unknown]
  - Eye swelling [Unknown]
  - Urticaria [Unknown]
  - Pruritus [Unknown]
  - Hyperhidrosis [Unknown]
  - Fatigue [Unknown]
